FAERS Safety Report 25401366 (Version 3)
Quarter: 2025Q3

REPORT INFORMATION
  Report Type: Report from Study
  Country: US (occurrence: US)
  Receive Date: 20250605
  Receipt Date: 20250802
  Transmission Date: 20251020
  Serious: Yes (Other)
  Sender: ALEXION PHARMACEUTICALS
  Company Number: US-AstraZeneca-CH-00880483A

PATIENT
  Age: 75 Year
  Sex: Female

DRUGS (2)
  1. SOLIRIS [Suspect]
     Active Substance: ECULIZUMAB
     Indication: Myasthenia gravis
     Route: 065
  2. LASIX [Concomitant]
     Active Substance: FUROSEMIDE
     Route: 065

REACTIONS (5)
  - Coronary artery occlusion [Unknown]
  - Post procedural haemorrhage [Unknown]
  - Ankle fracture [Unknown]
  - Fall [Unknown]
  - Pyrexia [Unknown]

NARRATIVE: CASE EVENT DATE: 20250501
